FAERS Safety Report 25012737 (Version 1)
Quarter: 2025Q1

REPORT INFORMATION
  Report Type: Spontaneous
  Country: US (occurrence: None)
  Receive Date: 20250225
  Receipt Date: 20250225
  Transmission Date: 20250409
  Serious: Yes (Death, Hospitalization)
  Sender: FDA-CTU
  Company Number: None

PATIENT
  Age: 86 Year
  Sex: Male

DRUGS (1)
  1. LENALIDOMIDE [Suspect]
     Active Substance: LENALIDOMIDE
     Indication: Plasma cell myeloma
     Dosage: FREQUENCY : DAILY;?
     Route: 048
     Dates: start: 20240809, end: 20250213

REACTIONS (13)
  - Acute left ventricular failure [None]
  - Condition aggravated [None]
  - Acute kidney injury [None]
  - Anaemia [None]
  - Thrombocytopenia [None]
  - Pancytopenia [None]
  - Acidosis [None]
  - Hypoglycaemia [None]
  - Bradycardia [None]
  - Ventricular tachycardia [None]
  - Cardio-respiratory arrest [None]
  - Hypotension [None]
  - Cardiac arrest [None]

NARRATIVE: CASE EVENT DATE: 20250213
